FAERS Safety Report 13497564 (Version 2)
Quarter: 2017Q2

REPORT INFORMATION
  Report Type: Report from Study
  Country: US (occurrence: US)
  Receive Date: 20170428
  Receipt Date: 20170628
  Transmission Date: 20170830
  Serious: Yes (Hospitalization)
  Sender: FDA-Public Use
  Company Number: US-TESARO, INC.-US-2017TSO00106

PATIENT
  Age: 62 Year
  Sex: Female

DRUGS (21)
  1. FLONASE                            /00908302/ [Concomitant]
     Active Substance: MOMETASONE FUROATE
     Indication: HYPERSENSITIVITY
     Dosage: 1, SPRAY, PRN
     Route: 045
     Dates: start: 20120301
  2. MULTIVITAMIN                       /07504101/ [Concomitant]
     Active Substance: VITAMINS
     Indication: VITAMIN SUPPLEMENTATION
     Dosage: 1 DF, PRN
     Route: 048
     Dates: start: 20160301
  3. TYLENOL [Concomitant]
     Active Substance: ACETAMINOPHEN
     Indication: PAIN
     Dosage: 1000 MG, PRN
     Route: 048
     Dates: start: 20120301
  4. BETA GLUCAN [Concomitant]
     Active Substance: BETA GLUCAN
     Indication: SUPPLEMENTATION THERAPY
     Dosage: 1000 MG, QD
     Route: 048
     Dates: start: 20140301
  5. CALCIUM CARBONATE W/COLECALCIFEROL [Concomitant]
     Active Substance: CALCIUM CARBONATE\CHOLECALCIFEROL
     Indication: SUPPLEMENTATION THERAPY
     Dosage: 1 DF, QD
     Route: 048
     Dates: start: 20070301
  6. VITAMIN D3 [Concomitant]
     Active Substance: CHOLECALCIFEROL
     Indication: SUPPLEMENTATION THERAPY
     Dosage: 1000 IU, QD
     Route: 048
     Dates: start: 20150301
  7. VITAMIN B12 [Concomitant]
     Active Substance: CYANOCOBALAMIN
     Indication: SUPPLEMENTATION THERAPY
     Dosage: 1 DF, QD
     Route: 060
     Dates: start: 20170101
  8. LIPITOR [Concomitant]
     Active Substance: ATORVASTATIN CALCIUM
     Indication: HYPERCHOLESTEROLAEMIA
     Dosage: 10 MG, QD
     Route: 048
     Dates: start: 20070301
  9. PEMBROLIZUMAB. [Suspect]
     Active Substance: PEMBROLIZUMAB
     Indication: OVARIAN CANCER
     Dosage: 200 MG, EVERY 21 DAYS
     Route: 042
     Dates: start: 20170309, end: 20170309
  10. PEMBROLIZUMAB. [Suspect]
     Active Substance: PEMBROLIZUMAB
     Dosage: 200 MG, EVERY 21 DAYS
     Route: 042
     Dates: start: 20170330, end: 20170330
  11. SPIRULINA SPP. [Concomitant]
     Indication: SUPPLEMENTATION THERAPY
     Dosage: 1 DF, QD
     Route: 048
     Dates: start: 20150301
  12. IBUPROFEN. [Concomitant]
     Active Substance: IBUPROFEN
     Indication: PAIN
     Dosage: 400 MG, PRN
     Route: 048
     Dates: start: 20130301
  13. ACETYLCARNITINE W/THIOCTIC ACID [Concomitant]
     Indication: SUPPLEMENTATION THERAPY
     Dosage: 2 DF, QD
     Route: 048
     Dates: start: 20170101
  14. FERROUS SULFATE. [Concomitant]
     Active Substance: FERROUS SULFATE
     Indication: SUPPLEMENTATION THERAPY
     Dosage: 325 MG, BID
     Route: 048
     Dates: start: 20170217
  15. EMLA [Concomitant]
     Active Substance: LIDOCAINE\PRILOCAINE
     Indication: PAIN
     Dosage: APPLY TO PORT SITE 1 HR PRIOR TO ACCESS PRN
     Route: 062
     Dates: start: 20150320
  16. QUERCETIN DIHYDRATE [Concomitant]
     Indication: SUPPLEMENTATION THERAPY
     Dosage: 500 MG, QD
     Route: 048
     Dates: start: 20161201
  17. NIRAPARIB [Suspect]
     Active Substance: NIRAPARIB
     Dosage: UNK
     Route: 048
     Dates: start: 20170413
  18. LEVOTHYROXINE. [Concomitant]
     Active Substance: LEVOTHYROXINE
     Indication: HYPOTHYROIDISM
     Dosage: 125 ?G, QD
     Route: 048
     Dates: start: 20040301
  19. VITAMIN B6 [Concomitant]
     Active Substance: PYRIDOXINE HYDROCHLORIDE
     Indication: VITAMIN SUPPLEMENTATION
     Dosage: 1 DF, QD
     Route: 048
     Dates: start: 20161201
  20. NIRAPARIB [Suspect]
     Active Substance: NIRAPARIB
     Indication: OVARIAN CANCER
     Dosage: 200 MG, QD
     Route: 048
     Dates: start: 20170309, end: 20170405
  21. COLACE [Concomitant]
     Active Substance: DOCUSATE SODIUM
     Indication: CONSTIPATION
     Dosage: 100 MG, PRN
     Route: 048
     Dates: start: 20161229

REACTIONS (1)
  - Rash pruritic [Recovered/Resolved with Sequelae]

NARRATIVE: CASE EVENT DATE: 20170405
